FAERS Safety Report 24876984 (Version 1)
Quarter: 2025Q1

REPORT INFORMATION
  Report Type: Spontaneous
  Country: US (occurrence: US)
  Receive Date: 20250123
  Receipt Date: 20250123
  Transmission Date: 20250409
  Serious: Yes (Other)
  Sender: BRISTOL-MYERS SQUIBB COMPANY
  Company Number: US-BRISTOL-MYERS SQUIBB COMPANY-2025-009757

PATIENT
  Age: 77 Year
  Sex: Female

DRUGS (1)
  1. REVLIMID [Suspect]
     Active Substance: LENALIDOMIDE
     Indication: Plasma cell myeloma
     Dosage: FREQUENCY: QD FOR 14 DAYS THEN 7 DAYS OFF
     Route: 048

REACTIONS (7)
  - Rash [Unknown]
  - Fatigue [Unknown]
  - Myalgia [Unknown]
  - Neuropathy peripheral [Unknown]
  - Lacrimation increased [Unknown]
  - Vision blurred [Unknown]
  - Off label use [Unknown]
